FAERS Safety Report 13642390 (Version 1)
Quarter: 2017Q2

REPORT INFORMATION
  Report Type: Spontaneous
  Country: US (occurrence: US)
  Receive Date: 20170612
  Receipt Date: 20170612
  Transmission Date: 20170830
  Serious: Yes (Hospitalization, Other)
  Sender: FDA-Public Use
  Company Number: US-GLAXOSMITHKLINE-US2017086359

PATIENT
  Sex: Female

DRUGS (8)
  1. FLONASE [Suspect]
     Active Substance: FLUTICASONE PROPIONATE
     Indication: PRODUCT USED FOR UNKNOWN INDICATION
     Dosage: UNK
     Dates: start: 2011
  2. MONTELUKAST [Concomitant]
     Active Substance: MONTELUKAST SODIUM
  3. PREDNISONE. [Concomitant]
     Active Substance: PREDNISONE
  4. ALLEGRA [Concomitant]
     Active Substance: FEXOFENADINE HYDROCHLORIDE
  5. CELEBREX [Concomitant]
     Active Substance: CELECOXIB
  6. ZOCOR [Concomitant]
     Active Substance: SIMVASTATIN
  7. VERAMYST [Suspect]
     Active Substance: FLUTICASONE FUROATE
     Indication: RHINORRHOEA
     Dosage: 4 PUFF(S), QD
     Route: 045
     Dates: start: 2007
  8. NASACORT [Suspect]
     Active Substance: TRIAMCINOLONE ACETONIDE
     Indication: PRODUCT USED FOR UNKNOWN INDICATION
     Dosage: UNK
     Dates: start: 2011

REACTIONS (3)
  - Knee arthroplasty [Unknown]
  - Cough [Recovered/Resolved]
  - Arthroscopy [Unknown]

NARRATIVE: CASE EVENT DATE: 2008
